FAERS Safety Report 4968845-7 (Version None)
Quarter: 2006Q2

REPORT INFORMATION
  Report Type: 
  Country: None (occurrence: None)
  Receive Date: 20060411
  Receipt Date: 20060404
  Transmission Date: 20061013
  Serious: Yes (Other)
  Sender: FDA-Public Use
  Company Number: PHNU2006SI01595

PATIENT
  Age: 69 Year
  Sex: Male

DRUGS (10)
  1. CLOZAPINE [Suspect]
     Indication: PARANOIA
     Dosage: 100 MG, UNK
     Route: 048
     Dates: start: 20030101, end: 20060309
  2. EGLONYL [Concomitant]
     Dates: end: 20060309
  3. LORAM [Concomitant]
     Dosage: 1 MG, TID
  4. ZOLPIDEM TARTRATE [Concomitant]
     Dosage: AS NEEDED
  5. ENAP [Concomitant]
     Dosage: 5 MG, BID
  6. ASPIRIN [Concomitant]
     Dosage: 100 MG, UNK
  7. PARACETAMOL [Concomitant]
     Dosage: AS NEEDED
  8. IBUPROFEN [Concomitant]
     Dosage: 10 MG, UNK
  9. BETAMETHASONE [Concomitant]
  10. PORTALAK [Concomitant]
     Dosage: AS NEEDED

REACTIONS (3)
  - CHILLS [None]
  - HYPOTHERMIA [None]
  - WHITE BLOOD CELL COUNT INCREASED [None]
